FAERS Safety Report 7687971-5 (Version None)
Quarter: 2011Q3

REPORT INFORMATION
  Report Type: 
  Country: None (occurrence: None)
  Receive Date: 20110817
  Receipt Date: 20110815
  Transmission Date: 20111222
  Serious: Yes (Hospitalization)
  Sender: FDA-Public Use
  Company Number: US-TEVA-296550USA

PATIENT
  Sex: Male

DRUGS (3)
  1. VICODIN [Concomitant]
  2. CYCLOBENZAPRINE HYDROCHLORIDE [Concomitant]
  3. PROAIR HFA [Suspect]
     Indication: ASTHMA
     Route: 055

REACTIONS (1)
  - INTERVERTEBRAL DISC PROTRUSION [None]
